FAERS Safety Report 5353132-8 (Version None)
Quarter: 2007Q2

REPORT INFORMATION
  Report Type: 
  Country: None (occurrence: None)
  Receive Date: 20070611
  Receipt Date: 20070601
  Transmission Date: 20071010
  Serious: Yes (Hospitalization)
  Sender: FDA-Public Use
  Company Number: PL-PFIZER INC-2004056389

PATIENT
  Sex: Male
  Weight: 52.5 kg

DRUGS (2)
  1. SILDENAFIL CITRATE [Suspect]
     Indication: PULMONARY HYPERTENSION
     Route: 048
  2. ACETYLSALICYLIC ACID SRT [Concomitant]
     Route: 048

REACTIONS (1)
  - VENTRICULAR ARRHYTHMIA [None]
